FAERS Safety Report 9321184 (Version 2)
Quarter: 2013Q2

REPORT INFORMATION
  Report Type: Spontaneous
  Country: US (occurrence: US)
  Receive Date: 20130531
  Receipt Date: 20130605
  Transmission Date: 20140414
  Serious: Yes (Hospitalization)
  Sender: FDA-Public Use
  Company Number: US-BAYER-2013-065962

PATIENT
  Age: 42 Year
  Sex: Female
  Weight: 131.97 kg

DRUGS (5)
  1. YAZ [Suspect]
     Dosage: UNK
     Dates: start: 20070529
  2. YASMIN [Suspect]
  3. MIDRIN [Concomitant]
     Dosage: UNK
     Route: 048
     Dates: start: 20070714
  4. AMBIEN [Concomitant]
  5. LISINOPRIL [Concomitant]
     Indication: HYPERTENSION

REACTIONS (5)
  - Pulmonary embolism [None]
  - Deep vein thrombosis [Recovered/Resolved]
  - Thrombophlebitis superficial [None]
  - Anxiety [None]
  - Insomnia [None]
